FAERS Safety Report 26206422 (Version 1)
Quarter: 2025Q4

REPORT INFORMATION
  Report Type: Spontaneous
  Country: CN (occurrence: CN)
  Receive Date: 20251229
  Receipt Date: 20251229
  Transmission Date: 20260117
  Serious: Yes (Other)
  Sender: ROCHE
  Company Number: CN-ROCHE-10000464796

PATIENT

DRUGS (1)
  1. OSELTAMIVIR [Suspect]
     Active Substance: OSELTAMIVIR
     Indication: Influenza

REACTIONS (11)
  - Nausea [Unknown]
  - Muscle contracture [Unknown]
  - Tinnitus [Unknown]
  - Oropharyngeal pain [Unknown]
  - Vision blurred [Unknown]
  - Loss of consciousness [Recovered/Resolved]
  - Hyperhidrosis [Unknown]
  - Feeling hot [Unknown]
  - Hypoaesthesia [Unknown]
  - Intentional product misuse [Unknown]
  - Hypoacusis [Unknown]
